FAERS Safety Report 5731138-4 (Version None)
Quarter: 2008Q2

REPORT INFORMATION
  Report Type: 
  Country: None (occurrence: None)
  Receive Date: 20080505
  Receipt Date: 20080424
  Transmission Date: 20081010
  Serious: Yes (Hospitalization)
  Sender: FDA-Public Use
  Company Number: 2008-01469

PATIENT
  Age: 57 Year
  Sex: Female
  Weight: 100 kg

DRUGS (21)
  1. VELCADE [Suspect]
     Indication: MULTIPLE MYELOMA
     Dosage: 2.7 MG, INTRAVENOUS
     Route: 042
     Dates: start: 20071023, end: 20071102
  2. DEXAMETHASONE TAB [Suspect]
     Indication: MULTIPLE MYELOMA
     Dosage: 20 MG, ORAL
     Route: 048
     Dates: start: 20071023, end: 20071102
  3. ESOMEPRAZOLE  (ESOMEPRAZOLE) [Concomitant]
  4. MAXOLON [Concomitant]
  5. ACETAMINOPHEN [Concomitant]
  6. TEMAZEPAM [Concomitant]
  7. AMLODIPINE [Concomitant]
  8. FUROSEMIDE [Concomitant]
  9. OXYCODONE HCL [Concomitant]
  10. PAROXETINE HCL [Concomitant]
  11. PROCHLORPERAZINE MALEATE [Concomitant]
  12. SLOW-K [Concomitant]
  13. VALACYCLOVIR [Concomitant]
  14. FENTANYL [Concomitant]
  15. GENTAMYCIN-MP (GENTAMICIN SULFATE) [Concomitant]
  16. OMEPRAZOLE [Concomitant]
  17. CEFEPIME [Concomitant]
  18. CIPROFLOXACIN [Concomitant]
  19. METFORMIN HCL [Concomitant]
  20. CALTRATE (CALCIUM CARBONATE) [Concomitant]
  21. OSTELIN (ERGOCALCIFEROL) [Concomitant]

REACTIONS (6)
  - CATHETER RELATED INFECTION [None]
  - DIARRHOEA [None]
  - DYSPNOEA [None]
  - GASTRIC ANTRAL VASCULAR ECTASIA [None]
  - LETHARGY [None]
  - MELAENA [None]
